FAERS Safety Report 9540296 (Version 1)
Quarter: 2013Q3

REPORT INFORMATION
  Report Type: Spontaneous
  Country: DE (occurrence: None)
  Receive Date: 20130917
  Receipt Date: 20130917
  Transmission Date: 20140515
  Serious: Yes (Other)
  Sender: FDA-Public Use
  Company Number: 1893315

PATIENT
  Sex: Male

DRUGS (5)
  1. CALCIUM FOLINATE [Suspect]
     Indication: METASTATIC CARCINOMA OF THE BLADDER
     Dosage: CYCLICAL
  2. IRINOTECAN HYDROCHLORIDE [Suspect]
     Indication: METASTATIC CARCINOMA OF THE BLADDER
     Dosage: CYCLICAL
  3. OXALIPLATIN [Suspect]
     Indication: METASTATIC CARCINOMA OF THE BLADDER
     Dosage: CYCLICAL
  4. FLUOROURACIL [Suspect]
     Indication: METASTATIC CARCINOMA OF THE BLADDER
     Dosage: CYCLICAL
  5. CETUXIMAB [Suspect]
     Indication: METASTATIC CARCINOMA OF THE BLADDER
     Dosage: CYCLICAL

REACTIONS (1)
  - Ill-defined disorder [None]
